FAERS Safety Report 24452613 (Version 1)
Quarter: 2024Q4

REPORT INFORMATION
  Report Type: Spontaneous
  Country: US (occurrence: US)
  Receive Date: 20241017
  Receipt Date: 20241017
  Transmission Date: 20250114
  Serious: No
  Sender: SANOFI AVENTIS
  Company Number: US-SA-2024SA295189

PATIENT
  Age: 38 Year
  Sex: Female

DRUGS (1)
  1. DUPIXENT [Suspect]
     Active Substance: DUPILUMAB
     Indication: Neurodermatitis
     Dosage: 600 MG, 1X
     Route: 058
     Dates: start: 20241003, end: 20241003

REACTIONS (4)
  - Neurodermatitis [Unknown]
  - Pruritus [Unknown]
  - Rash papular [Unknown]
  - Rash macular [Unknown]

NARRATIVE: CASE EVENT DATE: 20241001
